FAERS Safety Report 7652579-4 (Version None)
Quarter: 2011Q3

REPORT INFORMATION
  Report Type: 
  Country: None (occurrence: None)
  Receive Date: 20110803
  Receipt Date: 20110720
  Transmission Date: 20111222
  Serious: No
  Sender: FDA-Public Use
  Company Number: US-B.I. PHARMACEUTICALS,INC./RIDGEFIELD-2011-BP-15041BP

PATIENT
  Age: 81 Year
  Sex: Female

DRUGS (12)
  1. METOPROLOL TARTRATE [Concomitant]
     Indication: ATRIAL FIBRILLATION
     Dosage: 25 MG
     Route: 048
  2. MIRALAX [Concomitant]
     Indication: CONSTIPATION
  3. K CLOR [Concomitant]
     Indication: SUPPLEMENTATION THERAPY
     Route: 048
  4. PRADAXA [Suspect]
     Indication: ATRIAL FIBRILLATION
     Dosage: 300 MG
     Route: 048
     Dates: start: 20110410
  5. LASIX [Concomitant]
     Indication: CARDIAC FAILURE CONGESTIVE
     Dosage: 20 MG
     Route: 048
  6. DIGOXIN [Concomitant]
     Indication: ATRIAL FIBRILLATION
     Dosage: 0.125 MG
     Route: 048
  7. MIRALAX [Concomitant]
     Indication: IRRITABLE BOWEL SYNDROME
     Route: 048
  8. SILVER CENTRUM [Concomitant]
     Indication: SUPPLEMENTATION THERAPY
  9. SYNTHROID [Concomitant]
     Indication: THYROID DISORDER
     Route: 048
  10. SIMVASTATIN [Concomitant]
     Indication: BLOOD CHOLESTEROL INCREASED
     Dosage: 20 MG
     Route: 048
  11. OMEPRAZOLE [Concomitant]
     Indication: GASTROOESOPHAGEAL REFLUX DISEASE
     Route: 048
  12. VSL #3 [Concomitant]
     Indication: PROBIOTIC THERAPY

REACTIONS (3)
  - LETHARGY [None]
  - CONTUSION [None]
  - PRURITUS [None]
